FAERS Safety Report 15477907 (Version 2)
Quarter: 2018Q4

REPORT INFORMATION
  Report Type: Spontaneous
  Country: IR (occurrence: IR)
  Receive Date: 20181009
  Receipt Date: 20181021
  Transmission Date: 20190205
  Serious: Yes (Death, Other)
  Sender: FDA-Public Use
  Company Number: PHHY2018IR119626

PATIENT

DRUGS (1)
  1. AFINITOR [Suspect]
     Active Substance: EVEROLIMUS
     Indication: BREAST CANCER
     Dosage: UNK
     Route: 065

REACTIONS (6)
  - Metastases to spine [Fatal]
  - Malignant neoplasm progression [Fatal]
  - Breast cancer [Fatal]
  - Metastases to skin [Unknown]
  - Fatigue [Unknown]
  - Dizziness [Unknown]
